FAERS Safety Report 9433424 (Version 2)
Quarter: 2013Q3

REPORT INFORMATION
  Report Type: Spontaneous
  Country: BR (occurrence: BR)
  Receive Date: 20130731
  Receipt Date: 20130830
  Transmission Date: 20140515
  Serious: Yes (Hospitalization, Disabling, Other)
  Sender: FDA-Public Use
  Company Number: BR-ASTRAZENECA-2013SE56657

PATIENT
  Age: 67 Year
  Sex: Male
  Weight: 77 kg

DRUGS (7)
  1. ATACAND HCT [Suspect]
     Indication: HYPERTENSION
     Dosage: 16/12.5 MG
     Route: 048
     Dates: start: 2010
  2. BRILINTA [Suspect]
     Route: 048
  3. PRELONE [Suspect]
     Route: 065
     Dates: start: 2010, end: 2013
  4. TECNOMET [Concomitant]
     Indication: RHEUMATOID ARTHRITIS
     Dates: start: 2010
  5. ETANERCEPT [Concomitant]
     Indication: RHEUMATOID ARTHRITIS
     Dates: start: 2013
  6. ANTIHYPERTENSIVES [Concomitant]
  7. TREATMENT WITH 12 DRUGS [Concomitant]

REACTIONS (5)
  - Blindness unilateral [Not Recovered/Not Resolved]
  - Nosocomial infection [Recovered/Resolved]
  - Myocardial infarction [Recovered/Resolved]
  - Venous occlusion [Recovered/Resolved]
  - Skin disorder [Unknown]
